FAERS Safety Report 10276955 (Version 1)
Quarter: 2014Q3

REPORT INFORMATION
  Report Type: Spontaneous
  Country: US (occurrence: None)
  Receive Date: 20140701
  Receipt Date: 20140701
  Transmission Date: 20150326
  Serious: Yes (Life-Threatening, Hospitalization, Disabling)
  Sender: FDA-Public Use
  Company Number: None

PATIENT
  Age: 62 Year
  Sex: Female
  Weight: 86.18 kg

DRUGS (5)
  1. REMICADE [Suspect]
     Active Substance: INFLIXIMAB
     Indication: PSORIATIC ARTHROPATHY
     Dosage: INFUSION ?OCT 2013 WAS ONLY IN LOADING DOSE STAGE
     Dates: start: 201310, end: 20140226
  2. ESTRACE [Concomitant]
     Active Substance: ESTRADIOL
  3. LEVODYL [Concomitant]
  4. ZIAC [Concomitant]
     Active Substance: BISOPROLOL FUMARATE\HYDROCHLOROTHIAZIDE
  5. REMICADE [Suspect]
     Active Substance: INFLIXIMAB
     Indication: DERMATOMYOSITIS
     Dosage: INFUSION ?OCT 2013 WAS ONLY IN LOADING DOSE STAGE
     Dates: start: 201310, end: 20140226

REACTIONS (9)
  - Jaundice [None]
  - Back pain [None]
  - Chromaturia [None]
  - Abdominal pain [None]
  - Nausea [None]
  - Blood albumin decreased [None]
  - Peripheral swelling [None]
  - Lethargy [None]
  - Loss of employment [None]
